FAERS Safety Report 9052825 (Version 1)
Quarter: 2013Q1

REPORT INFORMATION
  Report Type: Spontaneous
  Country: FR (occurrence: FR)
  Receive Date: 20130207
  Receipt Date: 20130207
  Transmission Date: 20140127
  Serious: Yes (Other)
  Sender: FDA-Public Use
  Company Number: FR-ABBOTT-11P-056-0866173-00

PATIENT
  Age: 62 None
  Sex: Male
  Weight: 76 kg

DRUGS (3)
  1. LIPANTHYL [Suspect]
     Indication: HYPERCHOLESTEROLAEMIA
     Route: 048
     Dates: start: 201007, end: 201109
  2. COTAREG [Concomitant]
     Indication: HYPERTENSION
     Route: 048
     Dates: end: 2012
  3. VALSARTAN/HYDROCHLOROTHIAZIDE [Concomitant]
     Indication: HYPERTENSION
     Route: 048

REACTIONS (6)
  - Photosensitivity reaction [Recovered/Resolved]
  - Acne [Recovered/Resolved]
  - Haemorrhage [Recovered/Resolved]
  - Pruritus [Recovered/Resolved]
  - Rash [Recovered/Resolved]
  - Rash [Recovered/Resolved]
